FAERS Safety Report 8128106-4 (Version None)
Quarter: 2011Q4

REPORT INFORMATION
  Report Type: 
  Country: None (occurrence: None)
  Receive Date: 20111230
  Receipt Date: 20111118
  Transmission Date: 20120403
  Serious: Yes (Other)
  Sender: FDA-Public Use
  Company Number: 309769USA

PATIENT
  Sex: Female

DRUGS (1)
  1. VENLAFAXINE [Suspect]
     Dosage: 150 MG (75 MG, 2 IN 1 D)

REACTIONS (3)
  - RECTAL HAEMORRHAGE [None]
  - RECTAL DISCHARGE [None]
  - PROCTITIS ULCERATIVE [None]
